FAERS Safety Report 5496129-X (Version None)
Quarter: 2007Q4

REPORT INFORMATION
  Report Type: 
  Country: None (occurrence: None)
  Receive Date: 20071025
  Receipt Date: 20070316
  Transmission Date: 20080405
  Serious: No
  Sender: FDA-Public Use
  Company Number: A0637624A

PATIENT
  Age: 65 Year
  Sex: Female
  Weight: 63.6 kg

DRUGS (10)
  1. ADVAIR DISKUS 100/50 [Suspect]
     Indication: ASTHMA
     Dosage: 1PUFF TWICE PER DAY
     Route: 055
     Dates: start: 20060801
  2. SEMPREX [Concomitant]
  3. NAPROXIN [Concomitant]
  4. ZYRTEC [Concomitant]
  5. AMOXICILLIN [Concomitant]
  6. XOPENEX [Concomitant]
  7. ATROVENT [Concomitant]
  8. SINGULAIR [Concomitant]
  9. PREDNISONE [Concomitant]
  10. ALBUTEROL [Concomitant]

REACTIONS (2)
  - DRUG INEFFECTIVE [None]
  - PHARMACEUTICAL PRODUCT COMPLAINT [None]
